FAERS Safety Report 4949393-7 (Version None)
Quarter: 2006Q1

REPORT INFORMATION
  Report Type: 
  Country: None (occurrence: None)
  Receive Date: 20060315
  Receipt Date: 20060222
  Transmission Date: 20060701
  Serious: Yes (Hospitalization, Disabling, Other)
  Sender: FDA-Public Use
  Company Number: US_0510122672

PATIENT
  Age: 52 Year
  Sex: Female
  Weight: 134.5 kg

DRUGS (9)
  1. ZYPREXA [Suspect]
     Dosage: SEE IMAGE
     Dates: start: 19990511, end: 19990525
  2. ZYPREXA [Suspect]
     Dosage: SEE IMAGE
     Dates: start: 20000330, end: 20000516
  3. ZYPREXA [Suspect]
     Dosage: SEE IMAGE
     Dates: start: 20000516, end: 20001130
  4. ZYPREXA [Suspect]
     Dosage: SEE IMAGE
     Dates: start: 20001130, end: 20011129
  5. ZYPREXA [Suspect]
     Dosage: SEE IMAGE
     Dates: start: 19970201, end: 20031101
  6. ZYPREXA [Suspect]
     Dosage: SEE IMAGE
     Dates: start: 20011129
  7. ABILIFY [Concomitant]
  8. PROZAC [Concomitant]
  9. XANAX /USA/ (ALPRAZOLAM) [Concomitant]

REACTIONS (29)
  - AORTIC DILATATION [None]
  - ATRIAL FIBRILLATION [None]
  - ATRIAL FLUTTER [None]
  - BLOOD GLUCOSE INCREASED [None]
  - BUNDLE BRANCH BLOCK LEFT [None]
  - CARDIAC DISORDER [None]
  - CARDIAC FAILURE CONGESTIVE [None]
  - CARDIOMEGALY [None]
  - CONDITION AGGRAVATED [None]
  - DIABETES MELLITUS INADEQUATE CONTROL [None]
  - DIARRHOEA [None]
  - DILATATION VENTRICULAR [None]
  - DYSPNOEA [None]
  - EYE DISORDER [None]
  - FALL [None]
  - GLYCOSYLATED HAEMOGLOBIN INCREASED [None]
  - HYSTERECTOMY [None]
  - INAPPROPRIATE SCHEDULE OF DRUG ADMINISTRATION [None]
  - MITRAL VALVE INCOMPETENCE [None]
  - OBESITY [None]
  - PHARMACEUTICAL PRODUCT COMPLAINT [None]
  - PSYCHOTIC DISORDER [None]
  - PULMONARY HYPERTENSION [None]
  - TREATMENT NONCOMPLIANCE [None]
  - TRICUSPID VALVE INCOMPETENCE [None]
  - VENTRICULAR DYSFUNCTION [None]
  - VENTRICULAR FIBRILLATION [None]
  - VENTRICULAR HYPERTROPHY [None]
  - WEIGHT INCREASED [None]
